FAERS Safety Report 7231755-9 (Version None)
Quarter: 2011Q1

REPORT INFORMATION
  Report Type: 
  Country: None (occurrence: None)
  Receive Date: 20110118
  Receipt Date: 20110110
  Transmission Date: 20110831
  Serious: Yes (Hospitalization)
  Sender: FDA-Public Use
  Company Number: IT-ASTRAZENECA-2011SE01858

PATIENT
  Age: 20838 Day
  Sex: Female

DRUGS (5)
  1. GARDENALE (FENOBARBITAL) [Concomitant]
  2. DINTOINA (PHENYTOIN) [Concomitant]
  3. SEROQUEL [Suspect]
     Indication: MANIA
     Route: 048
     Dates: start: 20101201, end: 20101203
  4. CLONAZEPAM [Concomitant]
  5. VALPROATE SODIUM [Concomitant]

REACTIONS (2)
  - SOPOR [None]
  - CONFUSIONAL STATE [None]
